FAERS Safety Report 16855774 (Version 1)
Quarter: 2019Q3

REPORT INFORMATION
  Report Type: Spontaneous
  Country: SI (occurrence: SI)
  Receive Date: 20190926
  Receipt Date: 20190926
  Transmission Date: 20191005
  Serious: Yes (Other)
  Sender: FDA-Public Use
  Company Number: PHHY2019SI220249

PATIENT
  Age: 43 Year
  Sex: Female

DRUGS (1)
  1. PAZOPANIB [Suspect]
     Active Substance: PAZOPANIB
     Indication: CLEAR CELL RENAL CELL CARCINOMA
     Dosage: 400 MG, UNK
     Route: 065
     Dates: start: 201411

REACTIONS (6)
  - Malaise [Unknown]
  - Vomiting [Unknown]
  - Nausea [Unknown]
  - Bone marrow failure [Unknown]
  - Taste disorder [Unknown]
  - Decreased appetite [Unknown]
